FAERS Safety Report 21978500 (Version 2)
Quarter: 2023Q1

REPORT INFORMATION
  Report Type: Spontaneous
  Country: SG (occurrence: SG)
  Receive Date: 20230210
  Receipt Date: 20230317
  Transmission Date: 20230418
  Serious: Yes (Other)
  Sender: FDA-Public Use
  Company Number: SG-SA-SAC20230130000527

PATIENT
  Sex: Female

DRUGS (1)
  1. DUPIXENT [Suspect]
     Active Substance: DUPILUMAB
     Dosage: 300 MG, UNK

REACTIONS (4)
  - Appendicitis [Unknown]
  - Abdominal pain [Unknown]
  - Abdominal adhesions [Unknown]
  - Injection site pain [Unknown]
